FAERS Safety Report 25827406 (Version 1)
Quarter: 2025Q3

REPORT INFORMATION
  Report Type: Spontaneous
  Country: EU (occurrence: EU)
  Receive Date: 20250920
  Receipt Date: 20250920
  Transmission Date: 20251020
  Serious: Yes (Other)
  Sender: ALEXION PHARMACEUTICALS
  Company Number: EU-AstraZeneca-CH-00832047A

PATIENT
  Age: 54 Year
  Sex: Male

DRUGS (1)
  1. DURVALUMAB [Suspect]
     Active Substance: DURVALUMAB
     Indication: Bile duct cancer
     Dates: start: 20230724, end: 20240717

REACTIONS (2)
  - Thrombocytopenia [Recovered/Resolved]
  - Portal vein thrombosis [Unknown]

NARRATIVE: CASE EVENT DATE: 20230701
